FAERS Safety Report 7605405-3 (Version None)
Quarter: 2011Q3

REPORT INFORMATION
  Report Type: 
  Country: None (occurrence: None)
  Receive Date: 20110713
  Receipt Date: 20110628
  Transmission Date: 20111222
  Serious: Yes (Hospitalization, Other)
  Sender: FDA-Public Use
  Company Number: US-BAYER-201038012NA

PATIENT
  Age: 21 Year
  Sex: Female
  Weight: 86.168 kg

DRUGS (9)
  1. IBUPROFEN [Concomitant]
     Dosage: 800 MG, UNK
  2. PHENOXYBENZAMINE [Concomitant]
     Indication: PRODUCT USED FOR UNKNOWN INDICATION
     Dosage: 50 MG, TID
     Route: 048
  3. NIFEDIPINE [Concomitant]
  4. PENICILLIN VK [Concomitant]
     Dosage: 500 MG, UNK
  5. LIPITOR [Concomitant]
     Indication: PRODUCT USED FOR UNKNOWN INDICATION
     Route: 048
  6. ATENOLOL [Concomitant]
     Indication: HYPERTENSION
     Dosage: 50 MG, TABLETS
     Route: 048
     Dates: end: 20060107
  7. YASMIN [Suspect]
     Indication: PRODUCT USED FOR UNKNOWN INDICATION
     Dosage: UNK
     Dates: start: 20030101, end: 20060101
  8. BUTALBITAL ACETAMINOPHEN AND CAFFEINE [Concomitant]
  9. HYDROCHLOROTHIAZIDE [Concomitant]
     Indication: DIURETIC THERAPY
     Dosage: 50 MG, TABLETS
     Dates: end: 20060107

REACTIONS (5)
  - SPLENIC NEOPLASM MALIGNANCY UNSPECIFIED [None]
  - PHAEOCHROMOCYTOMA [None]
  - DIABETES MELLITUS [None]
  - PANCREATIC NEOPLASM [None]
  - GASTROINTESTINAL NEOPLASM [None]
